FAERS Safety Report 21871916 (Version 3)
Quarter: 2023Q4

REPORT INFORMATION
  Report Type: Spontaneous
  Country: US (occurrence: US)
  Receive Date: 20230117
  Receipt Date: 20231206
  Transmission Date: 20240110
  Serious: Yes (Other)
  Sender: FDA-Public Use
  Company Number: US-PFIZER INC-PV202300008908

PATIENT
  Age: 78 Year
  Sex: Female
  Weight: 68.3 kg

DRUGS (5)
  1. IBRANCE [Suspect]
     Active Substance: PALBOCICLIB
     Indication: Breast cancer female
     Dosage: 125 MG, CYCLIC(125 MG DAYS 1 THROUGH 21 Q. 28 DAYS ALONG WITH LETROZOLE 1 MG P.O DAILY)
     Route: 048
     Dates: start: 20211102
  2. IBRANCE [Suspect]
     Active Substance: PALBOCICLIB
     Indication: Hormone receptor positive breast cancer
     Dosage: 125 MG, CYCLIC(125 MG DAYS 1 THROUGH 21 Q. 28 DAYS ALONG WITH LETROZOLE 1 MG P.O DAILY)
     Route: 048
     Dates: start: 20211130
  3. IBRANCE [Suspect]
     Active Substance: PALBOCICLIB
     Dosage: 125 MG, CYCLIC (TAKE 1 TABLET DAILY FOR 21 DAYS THEN 7 DAYS OFF EVERY 28 DAYS)
     Route: 048
     Dates: start: 20221223
  4. LETROZOLE [Concomitant]
     Active Substance: LETROZOLE
     Dosage: 2.5 MG, 1X/DAY
     Dates: start: 2021
  5. APIXABAN [Concomitant]
     Active Substance: APIXABAN
     Indication: Superficial vein thrombosis
     Dosage: 5 MG, 2X/DAY
     Route: 048

REACTIONS (7)
  - Neutropenia [Unknown]
  - Thrombocytopenia [Unknown]
  - Thrombosis [Unknown]
  - Chondropathy [Unknown]
  - Essential hypertension [Unknown]
  - Pulmonary mass [Unknown]
  - Nicotine dependence [Unknown]
